FAERS Safety Report 23311115 (Version 3)
Quarter: 2024Q1

REPORT INFORMATION
  Report Type: Report from Study
  Country: US (occurrence: US)
  Receive Date: 20231218
  Receipt Date: 20240216
  Transmission Date: 20240410
  Serious: Yes (Other)
  Sender: FDA-Public Use
  Company Number: US-ABBVIE-5541309

PATIENT
  Sex: Female
  Weight: 56.699 kg

DRUGS (20)
  1. SKYRIZI [Suspect]
     Active Substance: RISANKIZUMAB-RZAA
     Indication: Psoriasis
     Dosage: DAY 0, STRENGTH -150MG/ML
     Route: 058
     Dates: start: 20230531, end: 20230531
  2. SKYRIZI [Suspect]
     Active Substance: RISANKIZUMAB-RZAA
     Dosage: DAY 28, STRENGTH -150MG/ML
     Route: 058
     Dates: start: 20230628, end: 20230628
  3. SKYRIZI [Suspect]
     Active Substance: RISANKIZUMAB-RZAA
     Dosage: STRENGTH -150MG/ML
     Route: 058
     Dates: start: 20230525, end: 20231229
  4. TREMFYA [Concomitant]
     Active Substance: GUSELKUMAB
     Indication: Product used for unknown indication
     Dosage: 100 MG/ML INJECTION (ONE-PRESS INJECTOR), NJECT 1 MT. SC ON WEEK 0, WEEK 4 AND Q 8 WEEK THEREAFTE...
     Dates: start: 20230504
  5. SUMATRIPTAN [Concomitant]
     Active Substance: SUMATRIPTAN
     Indication: Product used for unknown indication
     Dosage: SUMATRIPTAN (IMITREX),?FORM STRENGTH: 50 MILLIGRAM
     Dates: start: 20190422
  6. INDERAL [Concomitant]
     Active Substance: PROPRANOLOL HYDROCHLORIDE
     Indication: Product used for unknown indication
     Dosage: FORM STRENGTH: 40 MILLIGRAM
     Route: 048
  7. ASCORBIC ACID [Concomitant]
     Active Substance: ASCORBIC ACID
     Indication: Product used for unknown indication
     Dosage: ASCORBIC ACID (VITAMIN C)
     Route: 048
  8. PROMETHAZINE HYDROCHLORIDE [Concomitant]
     Active Substance: PROMETHAZINE HYDROCHLORIDE
     Indication: Product used for unknown indication
     Dosage: PROMETHAZINE HCI,?FORM STRENGTH: 25 MILLIGRAM
     Dates: start: 20210827
  9. DULOXETINE HYDROCHLORIDE [Concomitant]
     Active Substance: DULOXETINE HYDROCHLORIDE
     Indication: Product used for unknown indication
     Dosage: DULOXETINE HCI,?FORM STRENGTH: 60 MILLIGRAM
     Dates: start: 20150928
  10. SIMVASTATIN [Concomitant]
     Active Substance: SIMVASTATIN
     Indication: Product used for unknown indication
     Route: 048
     Dates: start: 20200416
  11. TRAZODONE HCL [Concomitant]
     Active Substance: TRAZODONE HYDROCHLORIDE
     Indication: Product used for unknown indication
     Dosage: TRAZODONE HCI,?FORM STRENGTH: 100 MILLIGRAM
     Dates: start: 20200416
  12. FLUTICASONE [Concomitant]
     Active Substance: FLUTICASONE
     Indication: Product used for unknown indication
     Dosage: 1 SPRAY BY NASAL ROUTE,?FLUTICASONE (FLONASE),?FORM STRENGTH: 50 MICROGRAM
     Dates: start: 20190610
  13. ZOLPIDEM TARTRATE [Concomitant]
     Active Substance: ZOLPIDEM TARTRATE
     Indication: Product used for unknown indication
     Dosage: ZOLPIDEM TARTRATE (AMBIEN)
     Route: 048
  14. GABAPENTIN [Concomitant]
     Active Substance: GABAPENTIN
     Indication: Product used for unknown indication
     Dosage: TIME INTERVAL: 0.33333333 DAYS: GABAPENTIN (NEURONTIN),?FORM STRENGTH: 100 MILLIGRAM
     Dates: start: 20230418, end: 20230516
  15. CALCIUM [Concomitant]
     Active Substance: CALCIUM
     Indication: Product used for unknown indication
     Route: 048
  16. CLOBETASOL [Concomitant]
     Active Substance: CLOBETASOL
     Indication: Product used for unknown indication
     Dosage: LATHER ONTO SCALP ONCE DAILY, LET SIT FOR 5 MINUTES, THEN RINSE.?CLOBETASOL (CLOBEX)?FORM STRENGT...
     Dates: start: 20230425
  17. DEXTRAN 70\HYPROMELLOSES [Concomitant]
     Active Substance: DEXTRAN 70\HYPROMELLOSES
     Indication: Product used for unknown indication
     Dosage: 0.1-0.3% OPHTHALMIC SOLUTION,PLACE 1-2 DROPS INTO THE RIGHT EYE EVERY HOUR AS NEEDED FOR DRY EYES...
     Dates: start: 20211008, end: 20231212
  18. LORAZEPAM [Concomitant]
     Active Substance: LORAZEPAM
     Indication: Product used for unknown indication
     Dosage: FORM STRENGTH: 0.5 MILLIGRAM
     Route: 048
     Dates: start: 20200416
  19. CYCLOBENZAPRINE HYDROCHLORIDE [Concomitant]
     Active Substance: CYCLOBENZAPRINE HYDROCHLORIDE
     Indication: Product used for unknown indication
     Dosage: CYCLOBENZAPRINE HCI
     Route: 048
     Dates: start: 20200416
  20. CYMBALTA [Concomitant]
     Active Substance: DULOXETINE HYDROCHLORIDE
     Indication: Product used for unknown indication
     Dosage: FORM STRENGTH: 60 MG
     Route: 048

REACTIONS (10)
  - Fibula fracture [Recovering/Resolving]
  - Fall [Recovering/Resolving]
  - Arthralgia [Recovering/Resolving]
  - Cough [Recovered/Resolved]
  - Pruritus [Unknown]
  - Limb injury [Recovering/Resolving]
  - Patella fracture [Unknown]
  - Bone pain [Unknown]
  - Nasopharyngitis [Unknown]
  - Rheumatoid arthritis [Unknown]

NARRATIVE: CASE EVENT DATE: 20230101
